FAERS Safety Report 16020447 (Version 18)
Quarter: 2022Q4

REPORT INFORMATION
  Report Type: Spontaneous
  Country: GB (occurrence: GB)
  Receive Date: 20190301
  Receipt Date: 20221212
  Transmission Date: 20230113
  Serious: Yes (Other)
  Sender: FDA-Public Use
  Company Number: GB-AUROBINDO-AUR-APL-2019-010130

PATIENT
  Sex: Male

DRUGS (44)
  1. ESCITALOPRAM [Suspect]
     Active Substance: ESCITALOPRAM OXALATE
     Indication: Product used for unknown indication
     Dosage: 10 MILLIGRAM
     Route: 048
  2. MIRTAZAPINE [Suspect]
     Active Substance: MIRTAZAPINE
     Indication: Product used for unknown indication
     Dosage: 30 MILLIGRAM
     Route: 048
  3. OLANZAPINE [Suspect]
     Active Substance: OLANZAPINE
     Indication: Product used for unknown indication
     Dosage: 5 MILLIGRAM, ONCE A DAY
     Route: 048
  4. OLANZAPINE [Suspect]
     Active Substance: OLANZAPINE
     Dosage: 10 MILLIGRAM, ONCE A DAY
     Route: 048
  5. AZATHIOPRINE [Suspect]
     Active Substance: AZATHIOPRINE
     Indication: Colitis
     Dosage: 25 MILLIGRAM, 3 TIMES A DAY
     Route: 048
  6. AZATHIOPRINE [Suspect]
     Active Substance: AZATHIOPRINE
     Dosage: 25 MILLIGRAM, ONCE A DAY
     Route: 065
  7. AZATHIOPRINE [Suspect]
     Active Substance: AZATHIOPRINE
     Dosage: 25 MILLIGRAM,
     Route: 048
  8. AZATHIOPRINE [Suspect]
     Active Substance: AZATHIOPRINE
     Dosage: 75 MILLIGRAM, 3 TIMES A DAY
     Route: 048
  9. AZATHIOPRINE [Suspect]
     Active Substance: AZATHIOPRINE
     Dosage: 75 MILLIGRAM, ONCE A DAY
     Route: 048
  10. DIHYDROCODEINE [Suspect]
     Active Substance: DIHYDROCODEINE
     Indication: Pain
     Dosage: 2 DOSAGE FORM
     Route: 048
  11. DIHYDROCODEINE [Suspect]
     Active Substance: DIHYDROCODEINE
     Dosage: 60 MILLIGRAM, ONCE A DAY
     Route: 048
  12. DIHYDROCODEINE [Suspect]
     Active Substance: DIHYDROCODEINE
     Dosage: 60 MILLIGRAM, FOUR TIMES/DAY
     Route: 048
  13. DIHYDROCODEINE [Suspect]
     Active Substance: DIHYDROCODEINE
     Dosage: 240 MILLIGRAM, ONCE A DAY
     Route: 048
  14. DIHYDROCODEINE [Suspect]
     Active Substance: DIHYDROCODEINE
     Dosage: 8 DOSAGE FORM, ONCE A DAY
     Route: 048
  15. DIHYDROCODEINE [Suspect]
     Active Substance: DIHYDROCODEINE
     Dosage: 240 MILLIGRAM, FOUR TIMES/DAY
     Route: 048
  16. DIHYDROCODEINE [Suspect]
     Active Substance: DIHYDROCODEINE
     Dosage: 8 DOSAGE FORM
     Route: 048
  17. DIHYDROCODEINE [Suspect]
     Active Substance: DIHYDROCODEINE
     Dosage: 2 DOSAGE FORM
     Route: 048
  18. DIHYDROCODEINE [Suspect]
     Active Substance: DIHYDROCODEINE
     Dosage: 60 MILLIGRAM, FOUR TIMES/DAY,
     Route: 048
  19. DIHYDROCODEINE [Suspect]
     Active Substance: DIHYDROCODEINE
     Dosage: 60 MILLIGRAM, FOUR TIMES/DAY
     Route: 048
  20. DIHYDROCODEINE [Suspect]
     Active Substance: DIHYDROCODEINE
     Dosage: 8 DOSAGE FORM
     Route: 048
  21. DIHYDROCODEINE [Suspect]
     Active Substance: DIHYDROCODEINE
     Dosage: 8 DOSAGE FORM
     Route: 048
  22. DIHYDROCODEINE [Suspect]
     Active Substance: DIHYDROCODEINE
     Dosage: 2 DOSAGE FORM, FOUR TIMES/DAY
     Route: 048
  23. DIHYDROCODEINE [Suspect]
     Active Substance: DIHYDROCODEINE
     Dosage: 60 MILLIGRAM, ONCE A DAY
     Route: 048
  24. DIHYDROCODEINE [Suspect]
     Active Substance: DIHYDROCODEINE
     Dosage: 60 MILLIGRAM, ONCE A DAY
     Route: 048
  25. DIHYDROCODEINE [Suspect]
     Active Substance: DIHYDROCODEINE
     Dosage: 8 DOSAGE FORM
     Route: 048
  26. DIHYDROCODEINE [Suspect]
     Active Substance: DIHYDROCODEINE
     Dosage: 240 MILLIGRAM,
     Route: 065
  27. DIHYDROCODEINE [Suspect]
     Active Substance: DIHYDROCODEINE
     Dosage: 960 MILLIGRAM, ONCE A DAY
     Route: 065
  28. DIHYDROCODEINE BITARTRATE [Suspect]
     Active Substance: DIHYDROCODEINE BITARTRATE
     Indication: Pain
     Dosage: 60 MILLIGRAM
     Route: 048
  29. DIHYDROCODEINE BITARTRATE [Suspect]
     Active Substance: DIHYDROCODEINE BITARTRATE
     Dosage: 60 MILLIGRAM, ONCE A DAY
     Route: 048
  30. DIHYDROCODEINE BITARTRATE [Suspect]
     Active Substance: DIHYDROCODEINE BITARTRATE
     Dosage: 960 MILLIGRAM
     Route: 048
  31. DIHYDROCODEINE BITARTRATE [Suspect]
     Active Substance: DIHYDROCODEINE BITARTRATE
     Dosage: 8 DOSAGE FORM
     Route: 065
  32. FERROUS FUMARATE [Suspect]
     Active Substance: FERROUS FUMARATE
     Indication: Anaemia
     Dosage: 420 MILLIGRAM, ONCE A DAY
     Route: 048
  33. FERROUS FUMARATE [Suspect]
     Active Substance: FERROUS FUMARATE
     Dosage: 210 MILLIGRAM, TWO TIMES A DAY
     Route: 048
  34. FERROUS FUMARATE [Suspect]
     Active Substance: FERROUS FUMARATE
     Dosage: 840 MILLIGRAM
     Route: 048
  35. FERROUS FUMARATE [Suspect]
     Active Substance: FERROUS FUMARATE
     Dosage: 210 MILLIGRAM QD
     Route: 048
  36. FERROUS FUMARATE [Suspect]
     Active Substance: FERROUS FUMARATE
     Dosage: 420 MILLIGRAM,
     Route: 048
  37. FERROUS FUMARATE [Suspect]
     Active Substance: FERROUS FUMARATE
     Dosage: 420 MILLIGRAM,
     Route: 048
  38. FERROUS FUMARATE [Suspect]
     Active Substance: FERROUS FUMARATE
     Dosage: 210 MILLIGRAM,
     Route: 048
  39. FOLIC ACID [Suspect]
     Active Substance: FOLIC ACID
     Indication: Folate deficiency
     Dosage: 5 MILLIGRAM,
     Route: 048
  40. FOLIC ACID [Suspect]
     Active Substance: FOLIC ACID
     Dosage: 5 MILLIGRAM,
     Route: 048
  41. PROMETHAZINE HYDROCHLORIDE [Suspect]
     Active Substance: PROMETHAZINE HYDROCHLORIDE
     Indication: Product used for unknown indication
     Dosage: 25 MILLIGRAM
     Route: 048
  42. IRON [Suspect]
     Active Substance: IRON
     Indication: Anaemia
     Dosage: 210 MILLIGRAM (BID)
     Route: 048
  43. IRON [Suspect]
     Active Substance: IRON
     Dosage: 420 MILLIGRAM, ONCE A DAY(210 MG, BID)
     Route: 048
  44. IRON [Suspect]
     Active Substance: IRON
     Dosage: UNK
     Route: 065

REACTIONS (3)
  - Seizure [Unknown]
  - Autoscopy [Unknown]
  - Overdose [Unknown]
